FAERS Safety Report 8629579 (Version 2)
Quarter: 2013Q1

REPORT INFORMATION
  Report Type: Report from Study
  Country: US (occurrence: US)
  Receive Date: 20120622
  Receipt Date: 20130319
  Transmission Date: 20140127
  Serious: Yes (Other)
  Sender: FDA-Public Use
  Company Number: US-BAYER-2012-061508

PATIENT
  Age: 49 Year
  Sex: Female
  Weight: 84 kg

DRUGS (2)
  1. BETASERON [Suspect]
     Indication: RELAPSING-REMITTING MULTIPLE SCLEROSIS
     Dosage: UNK
     Dates: start: 19940808, end: 19950808
  2. BETASERON [Suspect]
     Indication: RELAPSING-REMITTING MULTIPLE SCLEROSIS
     Dosage: 8 MIU, QOD
     Dates: start: 20120518

REACTIONS (6)
  - Chills [Recovered/Resolved]
  - Muscle spasticity [Recovered/Resolved]
  - Seizure like phenomena [Recovered/Resolved]
  - Dyskinesia [Recovered/Resolved]
  - Malaise [None]
  - Medication error [None]
